FAERS Safety Report 6107259-3 (Version None)
Quarter: 2009Q1

REPORT INFORMATION
  Report Type: 
  Country: None (occurrence: None)
  Receive Date: 20090309
  Receipt Date: 20090226
  Transmission Date: 20090719
  Serious: Yes (Hospitalization, Other)
  Sender: FDA-Public Use
  Company Number: US-BAYER-200827888GPV

PATIENT
  Age: 66 Year
  Sex: Male

DRUGS (2)
  1. SORAFENIB [Suspect]
     Indication: METASTATIC NEOPLASM
     Route: 048
     Dates: start: 20080304, end: 20080928
  2. AMG 386 OR PLACEBO [Suspect]
     Indication: METASTATIC NEOPLASM
     Route: 042
     Dates: start: 20080304, end: 20080929

REACTIONS (7)
  - BLINDNESS [None]
  - BLINDNESS TRANSIENT [None]
  - BLINDNESS UNILATERAL [None]
  - RETINAL OEDEMA [None]
  - RETINAL VASCULAR THROMBOSIS [None]
  - VISUAL ACUITY REDUCED [None]
  - VITREOUS HAEMORRHAGE [None]
